FAERS Safety Report 20372092 (Version 1)
Quarter: 2022Q1

REPORT INFORMATION
  Report Type: Spontaneous
  Country: US (occurrence: US)
  Receive Date: 20220124
  Receipt Date: 20220124
  Transmission Date: 20220424
  Serious: No
  Sender: FDA-Public Use
  Company Number: US-FERRINGPH-2021FE06817

PATIENT
  Age: 61 Year
  Sex: Female

DRUGS (3)
  1. CLENPIQ [Suspect]
     Active Substance: ANHYDROUS CITRIC ACID\MAGNESIUM OXIDE\SODIUM PICOSULFATE
     Indication: Bowel preparation
     Dosage: 2 BOTTLES
     Route: 065
     Dates: start: 20211010, end: 20211010
  2. VITAMIN D NOS [Concomitant]
     Active Substance: VITAMIN D NOS
     Indication: Product used for unknown indication
     Dosage: UNK, STOPPED 4 DAYS PRIOR COLONOSCOPY
     Route: 065
  3. HERBALS\TURMERIC [Concomitant]
     Active Substance: HERBALS\TURMERIC
     Indication: Product used for unknown indication
     Dosage: UNK, STOPPED 4 DAYS PRIOR COLONOSCOPY
     Route: 065

REACTIONS (4)
  - Tongue discomfort [Not Recovered/Not Resolved]
  - Oral discomfort [Unknown]
  - Insomnia [Not Recovered/Not Resolved]
  - Product taste abnormal [Unknown]

NARRATIVE: CASE EVENT DATE: 20211001
